FAERS Safety Report 7659783-X (Version None)
Quarter: 2011Q3

REPORT INFORMATION
  Report Type: 
  Country: None (occurrence: None)
  Receive Date: 20110805
  Receipt Date: 20110803
  Transmission Date: 20111222
  Serious: Yes (Death, Other)
  Sender: FDA-Public Use
  Company Number: PHHY2011GB14546

PATIENT
  Age: 60 Year
  Sex: Female
  Weight: 80.6 kg

DRUGS (6)
  1. CISPLATIN [Concomitant]
     Indication: CHEMOTHERAPY
     Dosage: 90 MG, UNK
     Route: 042
  2. DEXAMETHASONE [Concomitant]
     Indication: PREMEDICATION
     Dosage: 20 MG, UNK
     Route: 042
  3. CHLORPHENIRAMINE MALEATE [Concomitant]
     Indication: PREMEDICATION
     Dosage: 10 MG, UNK
     Route: 042
  4. RANITIDINE [Concomitant]
     Indication: PREMEDICATION
     Dosage: 50 MG, UNK
     Route: 042
  5. PACLITAXEL [Suspect]
     Indication: CERVIX CARCINOMA
     Dosage: 312 MG, UNK
     Route: 042
     Dates: start: 20101123
  6. ONDANSETRON [Concomitant]
     Indication: PREMEDICATION
     Dosage: 8 MG, UNK
     Route: 042

REACTIONS (3)
  - LOWER RESPIRATORY TRACT INFECTION [None]
  - ANAPHYLACTIC REACTION [None]
  - CARDIO-RESPIRATORY ARREST [None]
